FAERS Safety Report 8157056-2 (Version None)
Quarter: 2012Q1

REPORT INFORMATION
  Report Type: 
  Country: None (occurrence: None)
  Receive Date: 20120222
  Receipt Date: 20120213
  Transmission Date: 20120608
  Serious: Yes (Hospitalization)
  Sender: FDA-Public Use
  Company Number: US-B.I. PHARMACEUTICALS,INC./RIDGEFIELD-2011-BP-15542BP

PATIENT
  Age: 60 Year
  Sex: Male

DRUGS (6)
  1. TAXOL [Suspect]
     Indication: NON-SMALL CELL LUNG CANCER
     Dates: start: 20110207, end: 20110314
  2. ERBITUX [Suspect]
     Indication: NON-SMALL CELL LUNG CANCER
     Dates: start: 20110207, end: 20110502
  3. MOBIC [Suspect]
     Dosage: 15 MG
     Route: 048
  4. CARAFATE [Concomitant]
     Route: 048
  5. PRILOSEC [Concomitant]
     Dosage: 20 MG
     Route: 048
  6. CARBOPLATIN [Suspect]
     Indication: NON-SMALL CELL LUNG CANCER
     Dates: start: 20110207

REACTIONS (3)
  - PANCYTOPENIA [None]
  - NEUTROPENIA [None]
  - OESOPHAGITIS [None]
